FAERS Safety Report 9176948 (Version 1)
Quarter: 2013Q1

REPORT INFORMATION
  Report Type: Spontaneous
  Country: GB (occurrence: None)
  Receive Date: 20130319
  Receipt Date: 20130319
  Transmission Date: 20140127
  Serious: No
  Sender: FDA-Public Use
  Company Number: GER/UKI/13/0028553

PATIENT
  Age: 53 Year
  Sex: Male
  Weight: 103.5 kg

DRUGS (10)
  1. CLOPIDOGREL (CLOPIDOGREL) [Suspect]
     Indication: PRODUCT USED FOR UNKNOWN INDICATION
     Dates: start: 20130204, end: 20130304
  2. ATORVASTATIN (ATORVASTATIN) [Concomitant]
  3. DIPYRIDAMOLE (DIPYRIDAMOLE [Concomitant]
  4. GLICLAZIDE (GLICLAZIDE) [Concomitant]
  5. IRBESARTAN (IRBESARTAN) [Concomitant]
  6. LANSOPRAZOLE (LANSOPRAZOLE) [Concomitant]
  7. METFORMIN (METFORMIN) [Concomitant]
  8. PENICILLAMINE (PENICILLAMINE) [Concomitant]
  9. PIOGLITAZONE (PIOGLITAZONE) [Concomitant]
  10. POTASSIUM CITRATE (POTASSIUM CITRATE) [Concomitant]

REACTIONS (2)
  - Headache [None]
  - Nausea [None]
